FAERS Safety Report 6760220-8 (Version None)
Quarter: 2010Q2

REPORT INFORMATION
  Report Type: 
  Country: None (occurrence: None)
  Receive Date: 20100608
  Receipt Date: 20000630
  Transmission Date: 20101027
  Serious: No
  Sender: FDA-Public Use
  Company Number: 2000SUS0528

PATIENT
  Age: 29 Year
  Sex: Female

DRUGS (2)
  1. SUSTIVA [Suspect]
     Indication: HIV INFECTION
     Dosage: 600 MG AES#DOSE_FREQUENCY: DLY
     Route: 048
  2. COMBIVIR [Suspect]
     Indication: HIV INFECTION
     Dosage: 2 PILL AES#DOSE_FREQUENCY: DLY
     Route: 048

REACTIONS (2)
  - PREGNANCY [None]
  - STILLBIRTH [None]
